FAERS Safety Report 7980069-8 (Version None)
Quarter: 2011Q4

REPORT INFORMATION
  Report Type: 
  Country: None (occurrence: None)
  Receive Date: 20111214
  Receipt Date: 20111202
  Transmission Date: 20120403
  Serious: No
  Sender: FDA-Public Use
  Company Number: US-MUTUAL PHARMACEUTICAL COMPANY, INC.-TMZP20110003

PATIENT
  Age: 70 Year
  Sex: Female

DRUGS (2)
  1. TEMAZEPAM [Suspect]
     Indication: SLEEP DISORDER
     Route: 065
     Dates: start: 20110301
  2. TEMAZEPAM [Suspect]
     Indication: SLEEP DISORDER
     Route: 065
     Dates: start: 20090101

REACTIONS (4)
  - EYELID OEDEMA [None]
  - EYELIDS PRURITUS [None]
  - PRURITUS [None]
  - EYE SWELLING [None]
